FAERS Safety Report 4560416-X (Version None)
Quarter: 2005Q1

REPORT INFORMATION
  Report Type: 
  Country: None (occurrence: None)
  Receive Date: 20050125
  Receipt Date: 20050114
  Transmission Date: 20050727
  Serious: Yes (Other)
  Sender: FDA-Public Use
  Company Number: JP-MERCK-0501USA03207

PATIENT
  Age: 70 Year
  Sex: Male

DRUGS (2)
  1. PEPCID [Suspect]
     Route: 041
     Dates: start: 20050104, end: 20050112
  2. MIDAZOLAM HCL [Suspect]
     Indication: SEDATION
     Route: 041
     Dates: start: 20050104, end: 20050112

REACTIONS (1)
  - RHABDOMYOLYSIS [None]
